FAERS Safety Report 24238310 (Version 1)
Quarter: 2024Q3

REPORT INFORMATION
  Report Type: Report from Study
  Country: FR (occurrence: FR)
  Receive Date: 20240822
  Receipt Date: 20240822
  Transmission Date: 20241016
  Serious: Yes (Death, Other)
  Sender: ROCHE
  Company Number: FR-ROCHE-10000055462

PATIENT

DRUGS (2)
  1. ATEZOLIZUMAB [Suspect]
     Active Substance: ATEZOLIZUMAB
     Indication: Hepatocellular carcinoma
     Route: 065
  2. BEVACIZUMAB [Suspect]
     Active Substance: BEVACIZUMAB
     Indication: Hepatocellular carcinoma
     Route: 042

REACTIONS (34)
  - Fatigue [Unknown]
  - Decreased appetite [Unknown]
  - Weight decreased [Unknown]
  - Pyrexia [Unknown]
  - Colitis [Unknown]
  - Skin toxicity [Unknown]
  - Alanine aminotransferase increased [Unknown]
  - Hepatotoxicity [Unknown]
  - Chronic hepatic failure [Fatal]
  - Pancreatitis [Unknown]
  - Hyperthyroidism [Unknown]
  - Arthritis [Unknown]
  - Pneumonitis [Unknown]
  - Nervous system disorder [Unknown]
  - Cardiac failure [Unknown]
  - Myocarditis [Unknown]
  - Sepsis [Unknown]
  - Adrenal insufficiency [Unknown]
  - Diarrhoea [Unknown]
  - Hypertension [Unknown]
  - Proteinuria [Unknown]
  - Peripheral arterial occlusive disease [Unknown]
  - Subarachnoid haemorrhage [Unknown]
  - Tumour rupture [Unknown]
  - Pharyngeal haemorrhage [Unknown]
  - Oesophageal varices haemorrhage [Unknown]
  - Upper gastrointestinal haemorrhage [Unknown]
  - Vascular stent thrombosis [Fatal]
  - Pulmonary embolism [Unknown]
  - Gastrointestinal perforation [Unknown]
  - Impaired healing [Fatal]
  - Gastrointestinal haemorrhage [Fatal]
  - Gastric ulcer perforation [Fatal]
  - Encephalitis autoimmune [Fatal]
